FAERS Safety Report 4455248-7 (Version None)
Quarter: 2004Q3

REPORT INFORMATION
  Report Type: 
  Country: None (occurrence: None)
  Receive Date: 20040921
  Receipt Date: 20040827
  Transmission Date: 20050211
  Serious: Yes (Disabling)
  Sender: FDA-Public Use
  Company Number: US-MERCK-0408USA02176

PATIENT
  Age: 28 Year
  Sex: Male

DRUGS (1)
  1. PROPECIA [Suspect]
     Indication: ALOPECIA
     Route: 048
     Dates: start: 20040714, end: 20040801

REACTIONS (4)
  - EJACULATION DISORDER [None]
  - GROIN PAIN [None]
  - TESTICULAR PAIN [None]
  - VARICOCELE [None]
